FAERS Safety Report 10246005 (Version 1)
Quarter: 2014Q2

REPORT INFORMATION
  Report Type: Spontaneous
  Country: FR (occurrence: FR)
  Receive Date: 20140619
  Receipt Date: 20140619
  Transmission Date: 20141212
  Serious: Yes (Disabling)
  Sender: FDA-Public Use
  Company Number: PHHY2014FR073303

PATIENT
  Age: 14 Year
  Sex: Female

DRUGS (1)
  1. OMNITROPE [Suspect]
     Indication: GROWTH RETARDATION
     Dosage: 0.035 MG/KG, QD
     Route: 058
     Dates: start: 201211

REACTIONS (1)
  - Joint dislocation [Not Recovered/Not Resolved]
